FAERS Safety Report 9533971 (Version 1)
Quarter: 2013Q3

REPORT INFORMATION
  Report Type: Spontaneous
  Country: US (occurrence: US)
  Receive Date: 20130918
  Receipt Date: 20130918
  Transmission Date: 20140515
  Serious: No
  Sender: FDA-Public Use
  Company Number: US-PURDUE-USA-2011-0078521

PATIENT
  Sex: Female

DRUGS (2)
  1. BUTRANS [Suspect]
     Indication: PAIN
     Dosage: 5 MCG, Q1H
  2. ANALGESICS [Interacting]
     Indication: BREAKTHROUGH PAIN

REACTIONS (2)
  - Inadequate analgesia [Unknown]
  - Drug interaction [Unknown]
